FAERS Safety Report 5609194-3 (Version None)
Quarter: 2008Q1

REPORT INFORMATION
  Report Type: 
  Country: None (occurrence: None)
  Receive Date: 20080130
  Receipt Date: 20080130
  Transmission Date: 20080703
  Serious: No
  Sender: FDA-Public Use
  Company Number: None

PATIENT
  Age: 45 Year
  Sex: Female
  Weight: 74.2 kg

DRUGS (1)
  1. HEPARIN [Suspect]
     Indication: RENAL FAILURE CHRONIC
     Dosage: LD 1500U  H 1000  Q DIALYSIS RUN  IV
     Route: 042

REACTIONS (6)
  - ABDOMINAL PAIN UPPER [None]
  - HYPERHIDROSIS [None]
  - PALLOR [None]
  - PARAESTHESIA [None]
  - RETCHING [None]
  - VOMITING [None]
